FAERS Safety Report 6168038-4 (Version None)
Quarter: 2009Q2

REPORT INFORMATION
  Report Type: 
  Country: None (occurrence: None)
  Receive Date: 20090423
  Receipt Date: 20090409
  Transmission Date: 20091009
  Serious: Yes (Hospitalization)
  Sender: FDA-Public Use
  Company Number: 000644

PATIENT
  Age: 50 Year
  Sex: Female

DRUGS (2)
  1. VIMPAT [Suspect]
  2. CARBAMAZEPINE [Suspect]

REACTIONS (2)
  - CONDITION AGGRAVATED [None]
  - FEELING ABNORMAL [None]
